FAERS Safety Report 9597495 (Version 2)
Quarter: 2014Q3

REPORT INFORMATION
  Report Type: Spontaneous
  Country: US (occurrence: US)
  Receive Date: 20131004
  Receipt Date: 20140904
  Transmission Date: 20150326
  Serious: No
  Sender: FDA-Public Use
  Company Number: US-AMGEN-USASP2013019823

PATIENT
  Age: 52 Year
  Sex: Female
  Weight: 81.63 kg

DRUGS (1)
  1. ENBREL [Suspect]
     Active Substance: ETANERCEPT
     Indication: PSORIASIS
     Dosage: 50 MG, 2 TIMES/WK
     Route: 058

REACTIONS (6)
  - Injection site bruising [Unknown]
  - Psoriasis [Unknown]
  - Therapeutic procedure [Unknown]
  - Drug effect incomplete [Unknown]
  - Arthralgia [Unknown]
  - Injection site pain [Not Recovered/Not Resolved]

NARRATIVE: CASE EVENT DATE: 201206
